FAERS Safety Report 8473865-4 (Version None)
Quarter: 2012Q2

REPORT INFORMATION
  Report Type: 
  Country: None (occurrence: None)
  Receive Date: 20120628
  Receipt Date: 20120625
  Transmission Date: 20120825
  Serious: Yes (Other)
  Sender: FDA-Public Use
  Company Number: US-MYLANLABS-2012S1000228

PATIENT
  Age: 38 Year
  Sex: Male

DRUGS (10)
  1. CLOZAPINE [Suspect]
     Route: 048
     Dates: end: 20120220
  2. TRAZODONE HCL [Concomitant]
  3. LISINOPRIL [Concomitant]
  4. INVEGA [Concomitant]
  5. CLOZAPINE [Suspect]
     Route: 048
     Dates: start: 20120101, end: 20120101
  6. TOPAMAX [Concomitant]
  7. CLOZAPINE [Suspect]
     Route: 048
     Dates: start: 20120101
  8. LUVOX [Concomitant]
  9. ABILIFY [Concomitant]
  10. CLOZAPINE [Suspect]
     Route: 048
     Dates: end: 20120220

REACTIONS (2)
  - GRANULOCYTOPENIA [None]
  - LEUKOPENIA [None]
